FAERS Safety Report 13640665 (Version 1)
Quarter: 2017Q2

REPORT INFORMATION
  Report Type: Spontaneous
  Country: US (occurrence: US)
  Receive Date: 20170609
  Receipt Date: 20170609
  Transmission Date: 20170830
  Serious: No
  Sender: FDA-Public Use
  Company Number: None

PATIENT
  Age: 52 Year
  Sex: Male

DRUGS (1)
  1. ZEPATIER [Suspect]
     Active Substance: ELBASVIR\GRAZOPREVIR

REACTIONS (6)
  - Emotional disorder [None]
  - Anxiety [None]
  - Chills [None]
  - Viral upper respiratory tract infection [None]
  - Pruritus [None]
  - Poor quality sleep [None]

NARRATIVE: CASE EVENT DATE: 20170322
